FAERS Safety Report 10676398 (Version 3)
Quarter: 2015Q1

REPORT INFORMATION
  Report Type: Spontaneous
  Country: US (occurrence: US)
  Receive Date: 20141226
  Receipt Date: 20150331
  Transmission Date: 20150720
  Serious: Yes (Life-Threatening, Hospitalization, Disabling, Other)
  Sender: FDA-Public Use
  Company Number: US-009507513-1412USA011984

PATIENT
  Age: 56 Year
  Sex: Female
  Weight: 63 kg

DRUGS (4)
  1. INTEGRILIN [Suspect]
     Active Substance: EPTIFIBATIDE
     Indication: ACUTE MYOCARDIAL INFARCTION
  2. HEPARIN [Concomitant]
     Active Substance: HEPARIN SODIUM
  3. INTEGRILIN [Suspect]
     Active Substance: EPTIFIBATIDE
     Indication: STENT MALFUNCTION
     Dosage: 1MCG/KG/MIN X {24H
     Route: 042
     Dates: start: 20140410, end: 201404
  4. ASPIRIN. [Concomitant]
     Active Substance: ASPIRIN

REACTIONS (2)
  - Haematuria [Recovered/Resolved]
  - Haemoptysis [Recovered/Resolved]

NARRATIVE: CASE EVENT DATE: 20140410
